FAERS Safety Report 5268242-3 (Version None)
Quarter: 2007Q1

REPORT INFORMATION
  Report Type: 
  Country: None (occurrence: None)
  Receive Date: 20070319
  Receipt Date: 20070309
  Transmission Date: 20070707
  Serious: Yes (Hospitalization)
  Sender: FDA-Public Use
  Company Number: 2007UW04597

PATIENT
  Age: 42 Year
  Sex: Male
  Weight: 108.9 kg

DRUGS (4)
  1. SEROQUEL [Suspect]
     Indication: BIPOLAR DISORDER
     Route: 048
  2. FULL THROTTLE [Concomitant]
  3. EFFEXOR XR [Concomitant]
  4. LAMICTAL [Concomitant]

REACTIONS (1)
  - SHOCK [None]
